FAERS Safety Report 12009508 (Version 2)
Quarter: 2017Q3

REPORT INFORMATION
  Report Type: Spontaneous
  Country: CA (occurrence: CA)
  Receive Date: 20160205
  Receipt Date: 20170822
  Transmission Date: 20171127
  Serious: Yes (Life-Threatening, Other)
  Sender: FDA-Public Use
  Company Number: CA-SA-2016SA016990

PATIENT
  Age: 30 Year
  Sex: Female
  Weight: 65 kg

DRUGS (2)
  1. CLOMID [Suspect]
     Active Substance: CLOMIPHENE CITRATE
     Indication: OVULATION INDUCTION
     Dosage: FOR 2 DAYS
     Route: 048
     Dates: start: 201411, end: 201411
  2. CLOMID [Suspect]
     Active Substance: CLOMIPHENE CITRATE
     Indication: OVULATION INDUCTION
     Dosage: FOR 2 DAYS
     Route: 048
     Dates: start: 201412, end: 201412

REACTIONS (7)
  - Dyspnoea [Unknown]
  - Tremor [Unknown]
  - Feeling hot [Unknown]
  - Ectopic pregnancy [Unknown]
  - Heart rate increased [Unknown]
  - Multiple pregnancy [Unknown]
  - Chest discomfort [Unknown]
